FAERS Safety Report 9198513 (Version 1)
Quarter: 2013Q1

REPORT INFORMATION
  Report Type: Spontaneous
  Country: US (occurrence: None)
  Receive Date: 20130327
  Receipt Date: 20130327
  Transmission Date: 20140127
  Serious: Yes (Hospitalization)
  Sender: FDA-Public Use
  Company Number: None

PATIENT
  Age: 73 Year
  Sex: Female
  Weight: 77 kg

DRUGS (22)
  1. EPOPROSTENOL [Suspect]
     Indication: PULMONARY HYPERTENSION
     Dosage: 20 NG/KG/MIN CONTINUOUS
     Route: 041
  2. ALLOPURINOL [Concomitant]
  3. BOSENTAN [Concomitant]
  4. CALCIUM AND VITAMIN D [Concomitant]
  5. DIVALPROEX ER [Concomitant]
  6. ERGOCALCIFEROL [Concomitant]
  7. FAMOTIDINE [Concomitant]
  8. FERROUS SULFATE [Concomitant]
  9. FOLIC ACID [Concomitant]
  10. FUROSEMIDE [Concomitant]
  11. GUAIFENESIN ER [Concomitant]
  12. LAMOTRIGINE [Concomitant]
  13. LEVOTHYROXINE [Concomitant]
  14. METOLAZONE [Concomitant]
  15. NYSTATIN [Concomitant]
  16. PANTOPRAZOLE [Concomitant]
  17. PHENOBARBITAL [Concomitant]
  18. PAROXETINE [Concomitant]
  19. PRAVASTATIN [Concomitant]
  20. SILDENAFIL [Concomitant]
  21. TIOTROPIUM [Concomitant]
  22. VERAPAMIL [Concomitant]

REACTIONS (3)
  - Asthenia [None]
  - Dizziness [None]
  - Fall [None]
